FAERS Safety Report 10256693 (Version 1)
Quarter: 2014Q2

REPORT INFORMATION
  Report Type: Report from Study
  Country: CH (occurrence: CH)
  Receive Date: 20140624
  Receipt Date: 20140624
  Transmission Date: 20141212
  Serious: Yes (Other)
  Sender: FDA-Public Use
  Company Number: CH-MYLANLABS-2014S1014438

PATIENT
  Age: 45 Year
  Sex: Male
  Weight: 60 kg

DRUGS (5)
  1. AZATHIOPRINE [Suspect]
     Indication: INTENTIONAL OVERDOSE
     Dosage: 900MG (16.1 MG/KG)
     Route: 065
  2. AZATHIOPRINE [Suspect]
     Indication: OFF LABEL USE
     Dosage: 900MG (16.1 MG/KG)
     Route: 065
  3. AZATHIOPRINE [Suspect]
     Indication: INTENTIONAL OVERDOSE
     Dosage: 100 MG/DAY
     Route: 065
  4. AZATHIOPRINE [Suspect]
     Indication: OFF LABEL USE
     Dosage: 100 MG/DAY
     Route: 065
  5. OLANZAPINE [Suspect]
     Route: 065

REACTIONS (5)
  - Intentional overdose [Unknown]
  - Suicide attempt [Unknown]
  - Somnolence [Unknown]
  - Dysarthria [Unknown]
  - Miosis [Unknown]
